FAERS Safety Report 5574107-X (Version None)
Quarter: 2007Q4

REPORT INFORMATION
  Report Type: 
  Country: None (occurrence: None)
  Receive Date: 20071221
  Receipt Date: 20071217
  Transmission Date: 20080405
  Serious: Yes (Hospitalization)
  Sender: FDA-Public Use
  Company Number: 2007SP022830

PATIENT
  Age: 64 Year
  Sex: Female

DRUGS (2)
  1. VIRAFERONPEG [Suspect]
     Indication: HEPATIC CIRRHOSIS
     Dosage: 0.35 MCG; SC
     Route: 058
     Dates: start: 20060911, end: 20070620
  2. VIRAFERONPEG [Suspect]
     Indication: VIRAL INFECTION
     Dosage: 0.35 MCG; SC
     Route: 058
     Dates: start: 20060911, end: 20070620

REACTIONS (5)
  - ASCITES [None]
  - ASPARTATE AMINOTRANSFERASE INCREASED [None]
  - BLOOD BILIRUBIN INCREASED [None]
  - PROTHROMBIN LEVEL DECREASED [None]
  - THROMBOCYTOPENIA [None]
